FAERS Safety Report 5713049-3 (Version None)
Quarter: 2008Q2

REPORT INFORMATION
  Report Type: 
  Country: None (occurrence: None)
  Receive Date: 20080422
  Receipt Date: 20080401
  Transmission Date: 20081010
  Serious: Yes (Hospitalization)
  Sender: FDA-Public Use
  Company Number: US-GENENTECH-246199

PATIENT
  Sex: Female

DRUGS (13)
  1. RITUXAN [Suspect]
     Indication: B-CELL LYMPHOMA
     Dosage: 375 MG/M2, Q3W
     Route: 042
     Dates: start: 20070724
  2. ENZASTAURIN [Concomitant]
     Indication: B-CELL LYMPHOMA
     Dosage: 1125 MG, QD
     Route: 048
  3. ENZASTAURIN [Concomitant]
     Dosage: 500 MG, QD
     Route: 048
     Dates: start: 20070726
  4. CYCLOPHOSPHAMIDE [Concomitant]
     Indication: B-CELL LYMPHOMA
     Dosage: 750 MG/M2, Q3W
     Route: 042
     Dates: start: 20070724
  5. DOXORUBICIN HCL [Concomitant]
     Indication: B-CELL LYMPHOMA
     Dosage: 50 MG/M2, Q3W
     Route: 042
  6. VINCRISTINE [Concomitant]
     Indication: B-CELL LYMPHOMA
     Dosage: 1.4 MG/M2, Q3W
     Route: 042
     Dates: start: 20070724
  7. PREDNISONE [Concomitant]
     Indication: B-CELL LYMPHOMA
     Dosage: 100 MG, Q3W
     Route: 048
     Dates: start: 20070724
  8. CANDESARTAN CILEXETIL [Concomitant]
     Indication: DRUG USE FOR UNKNOWN INDICATION
  9. DEXTROPROPOXYPHEN NAPSYLATE/PARACETAMOL [Concomitant]
     Indication: DRUG USE FOR UNKNOWN INDICATION
  10. LEVOTHYROXINE SODIUM [Concomitant]
     Indication: DRUG USE FOR UNKNOWN INDICATION
  11. PARACETAMOL [Concomitant]
     Indication: DRUG USE FOR UNKNOWN INDICATION
  12. VITAMINS [Concomitant]
     Indication: DRUG USE FOR UNKNOWN INDICATION
  13. IBUPROFEN [Concomitant]
     Indication: DRUG USE FOR UNKNOWN INDICATION

REACTIONS (5)
  - BLOOD SODIUM DECREASED [None]
  - FEBRILE NEUTROPENIA [None]
  - HAEMATOCRIT DECREASED [None]
  - NEUTROPENIC SEPSIS [None]
  - PLATELET COUNT DECREASED [None]
